FAERS Safety Report 10201501 (Version 3)
Quarter: 2015Q2

REPORT INFORMATION
  Report Type: Spontaneous
  Country: US (occurrence: US)
  Receive Date: 20140528
  Receipt Date: 20150428
  Transmission Date: 20150821
  Serious: Yes (Congenital Anomaly, Other)
  Sender: FDA-Public Use
  Company Number: US-ELI_LILLY_AND_COMPANY-US201308008692

PATIENT

DRUGS (1)
  1. PROZAC [Suspect]
     Active Substance: FLUOXETINE HYDROCHLORIDE
     Dosage: 20 MG, UNKNOWN
     Route: 064

REACTIONS (10)
  - Congenital cardiovascular anomaly [Unknown]
  - Foetal exposure during pregnancy [Unknown]
  - Congenital mitral valve incompetence [Unknown]
  - Asthma [Unknown]
  - Atrial septal defect [Unknown]
  - Hypoplastic left heart syndrome [Unknown]
  - Congenital aortic stenosis [Unknown]
  - Ear malformation [Unknown]
  - Ventricular septal defect [Unknown]
  - Cardiac murmur [Unknown]
